FAERS Safety Report 10862260 (Version 1)
Quarter: 2015Q1

REPORT INFORMATION
  Report Type: Report from Study
  Country: GB (occurrence: None)
  Receive Date: 20150219
  Receipt Date: 20150219
  Transmission Date: 20150721
  Serious: Yes (Other)
  Sender: FDA-Public Use
  Company Number: GB2015GSK020094

PATIENT
  Age: 26 Year
  Sex: Female

DRUGS (2)
  1. KALETRA [Suspect]
     Active Substance: LOPINAVIR\RITONAVIR
     Indication: HIV INFECTION
     Dosage: TOTAL DAILY DOSE OF 4 TABS/CAPS
     Route: 048
  2. ABACAVIR SULFATE + LAMIVUDINE [Suspect]
     Active Substance: ABACAVIR SULFATE\LAMIVUDINE
     Indication: HIV INFECTION
     Dosage: TOTAL DAILY DOSE OF 1 TABLET
     Route: 048

REACTIONS (3)
  - Abortion induced [None]
  - Maternal exposure during pregnancy [None]
  - Ectopic pregnancy [None]

NARRATIVE: CASE EVENT DATE: 20140415
